FAERS Safety Report 5928873-1 (Version None)
Quarter: 2008Q4

REPORT INFORMATION
  Report Type: 
  Country: None (occurrence: None)
  Receive Date: 20081024
  Receipt Date: 20081015
  Transmission Date: 20090506
  Serious: Yes (Hospitalization)
  Sender: FDA-Public Use
  Company Number: FR-JNJFOC-20081003429

PATIENT
  Age: 80 Year
  Sex: Male

DRUGS (7)
  1. REMICADE [Suspect]
     Indication: RHEUMATOID ARTHRITIS
     Route: 042
  2. CORTANCYL [Suspect]
     Indication: RHEUMATOID ARTHRITIS
     Route: 048
  3. METHOTREXATE [Suspect]
     Indication: RHEUMATOID ARTHRITIS
     Route: 058
  4. LYRICA [Concomitant]
     Indication: POLYNEUROPATHY
     Route: 048
  5. DIGOXINE [Concomitant]
     Route: 048
  6. RIMIFON [Concomitant]
     Route: 048
  7. NITRODERM [Concomitant]
     Route: 062

REACTIONS (4)
  - ASTHMA [None]
  - LUNG INFECTION [None]
  - MYCOBACTERIAL INFECTION [None]
  - SERRATIA INFECTION [None]
